FAERS Safety Report 8230425-8 (Version None)
Quarter: 2012Q1

REPORT INFORMATION
  Report Type: 
  Country: None (occurrence: None)
  Receive Date: 20120323
  Receipt Date: 20120316
  Transmission Date: 20120608
  Serious: Yes (Other)
  Sender: FDA-Public Use
  Company Number: CA-UCBSA-039829

PATIENT
  Age: 57 Year
  Sex: Female
  Weight: 88.6 kg

DRUGS (22)
  1. ARAVA [Concomitant]
     Indication: RHEUMATOID ARTHRITIS
     Route: 048
     Dates: start: 20091201
  2. TYLENOL W/ CODEINE NO. 3 [Concomitant]
     Indication: PAIN
     Dosage: 2 TABLETS,WEEKLY
     Route: 048
  3. CIMZIA [Suspect]
     Indication: RHEUMATOID ARTHRITIS
     Route: 058
     Dates: start: 20110824, end: 20120103
  4. MELOXICAM [Concomitant]
     Route: 048
     Dates: start: 20020101
  5. MELOXICAM [Concomitant]
     Indication: ANALGESIC THERAPY
     Route: 048
     Dates: start: 20021001
  6. FOLIC ACID [Concomitant]
     Indication: MEDICAL DIET
     Route: 048
     Dates: start: 20030401
  7. IMODIUM [Concomitant]
     Indication: IRRITABLE BOWEL SYNDROME
     Dosage: 1/4 TAB
     Route: 048
  8. LEUCOVORIN CALCIUM [Concomitant]
     Route: 048
  9. PLAQUENIL [Concomitant]
     Indication: RHEUMATOID ARTHRITIS
     Route: 048
     Dates: start: 20021001
  10. MELOXICAM [Concomitant]
     Indication: ANALGESIC INTERVENTION SUPPORTIVE THERAPY
     Route: 048
  11. VITAMIN D [Concomitant]
     Indication: MEDICAL DIET
     Route: 048
  12. METHOTREXATE [Concomitant]
     Indication: RHEUMATOID ARTHRITIS
     Route: 058
     Dates: start: 20030401
  13. IMODIUM [Concomitant]
     Indication: DIARRHOEA
     Dosage: 1/4 TAB
     Route: 048
  14. ATIVAN [Concomitant]
     Indication: SLEEP DISORDER
     Dosage: HS/PRN
     Route: 060
  15. LIPITOR [Concomitant]
     Indication: BLOOD CHOLESTEROL
     Route: 048
     Dates: start: 20110101
  16. MELOXICAM [Concomitant]
     Indication: RHEUMATOID ARTHRITIS
     Route: 048
  17. MELOXICAM [Concomitant]
     Indication: ANALGESIC THERAPY
     Route: 048
  18. MELOXICAM [Concomitant]
     Route: 048
     Dates: start: 20020101
  19. CIMZIA [Suspect]
     Route: 058
     Dates: start: 20110713, end: 20110810
  20. MELOXICAM [Concomitant]
     Route: 048
     Dates: start: 20020101
  21. PROZAC [Concomitant]
     Indication: DEPRESSION
     Route: 048
  22. ATIVAN [Concomitant]
     Indication: ANXIETY
     Dosage: HS/PRN
     Route: 060

REACTIONS (4)
  - INJECTION SITE DISCOLOURATION [None]
  - FATIGUE [None]
  - VULVAL CANCER [None]
  - RASH [None]
